FAERS Safety Report 10780359 (Version 1)
Quarter: 2015Q1

REPORT INFORMATION
  Report Type: Other
  Country: US (occurrence: US)
  Receive Date: 20150210
  Receipt Date: 20150210
  Transmission Date: 20150721
  Serious: Yes (Death)
  Sender: FDA-Public Use
  Company Number: US-FRI-1000074440

PATIENT
  Age: 57 Year
  Sex: Male

DRUGS (8)
  1. ALPRAZOLAM. [Suspect]
     Active Substance: ALPRAZOLAM
  2. PAROXETINE [Suspect]
     Active Substance: PAROXETINE\PAROXETINE HYDROCHLORIDE
  3. QUININE [Suspect]
     Active Substance: QUININE
  4. CITALOPRAM [Suspect]
     Active Substance: CITALOPRAM HYDROBROMIDE
  5. ETHANOL [Suspect]
     Active Substance: ALCOHOL
  6. HEROIN [Suspect]
     Active Substance: DIACETYLMORPHINE
  7. DIAZEPAM. [Suspect]
     Active Substance: DIAZEPAM
  8. TRAZODONE [Suspect]
     Active Substance: TRAZODONE HYDROCHLORIDE

REACTIONS (1)
  - Drug abuse [Fatal]
